FAERS Safety Report 21022608 (Version 2)
Quarter: 2022Q3

REPORT INFORMATION
  Report Type: Spontaneous
  Country: US (occurrence: US)
  Receive Date: 20220629
  Receipt Date: 20220718
  Transmission Date: 20221027
  Serious: Yes (Other)
  Sender: FDA-Public Use
  Company Number: US-PFIZER INC-PV202200006475

PATIENT
  Age: 58 Year
  Sex: Female

DRUGS (4)
  1. PROPOFOL [Interacting]
     Active Substance: PROPOFOL
     Indication: General anaesthesia
     Dosage: 130 MG
  2. CANNABIS SATIVA SUBSP. INDICA TOP [Interacting]
     Active Substance: CANNABIS SATIVA SUBSP. INDICA TOP
     Dosage: UNK
  3. CYMBALTA [Concomitant]
     Active Substance: DULOXETINE HYDROCHLORIDE
     Indication: Carpal tunnel syndrome
     Dosage: UNK
  4. GABAPENTIN [Concomitant]
     Active Substance: GABAPENTIN
     Indication: Carpal tunnel syndrome
     Dosage: UNK

REACTIONS (2)
  - Drug interaction [Unknown]
  - Salivary hypersecretion [Unknown]
